FAERS Safety Report 9827943 (Version 1)
Quarter: 2014Q1

REPORT INFORMATION
  Report Type: Spontaneous
  Country: US (occurrence: US)
  Receive Date: 20140117
  Receipt Date: 20140117
  Transmission Date: 20141002
  Serious: No
  Sender: FDA-Public Use
  Company Number: US-TEVA-457233USA

PATIENT
  Sex: 0

DRUGS (1)
  1. TREANDA [Suspect]

REACTIONS (4)
  - Vein disorder [Unknown]
  - Discomfort [Unknown]
  - Infusion site extravasation [Unknown]
  - Erythema [Unknown]
